FAERS Safety Report 13020858 (Version 2)
Quarter: 2017Q1

REPORT INFORMATION
  Report Type: Spontaneous
  Country: US (occurrence: US)
  Receive Date: 20161212
  Receipt Date: 20170208
  Transmission Date: 20170428
  Serious: Yes (Other)
  Sender: FDA-Public Use
  Company Number: US-JNJFOC-20161200406

PATIENT
  Age: 58 Year
  Sex: Female
  Weight: 50.8 kg

DRUGS (6)
  1. PROZAC [Concomitant]
     Active Substance: FLUOXETINE HYDROCHLORIDE
     Indication: DEPRESSION
     Dosage: DOSAGE: 1 DAY, INTERVAL: YEARS; DURATION: 20 YEARS
     Route: 065
  2. PROZAC [Concomitant]
     Active Substance: FLUOXETINE HYDROCHLORIDE
     Indication: OBSESSIVE-COMPULSIVE DISORDER
     Dosage: DOSAGE: 1 DAY, INTERVAL: YEARS; DURATION: 20 YEARS
     Route: 065
  3. ALLEGRA [Concomitant]
     Active Substance: FEXOFENADINE HYDROCHLORIDE
     Indication: MULTIPLE ALLERGIES
     Dosage: DOSAGE: 1 DAY, INTERVAL: YEARS
     Route: 065
  4. SUDAFED 24 HOUR [Suspect]
     Active Substance: PSEUDOEPHEDRINE HYDROCHLORIDE
     Indication: MULTIPLE ALLERGIES
     Dosage: ONE IN 24 HOURS USED ABOUT 7 IN A 8DAYS SKIPPED ONE DAY.
     Route: 048
     Dates: start: 20161118, end: 20161125
  5. TEGRETOL [Concomitant]
     Active Substance: CARBAMAZEPINE
     Indication: SEIZURE
     Dosage: DOSAGE: 1 1/2 TWICE DAY, INTERVAL: YEARS; DURATION: 30 YEARS
     Route: 065
  6. SUDAFED 24 HOUR [Suspect]
     Active Substance: PSEUDOEPHEDRINE HYDROCHLORIDE
     Indication: NASOPHARYNGITIS
     Dosage: ONE IN 24 HOURS USED ABOUT 7 IN A 8DAYS SKIPPED ONE DAY.
     Route: 048
     Dates: start: 20161118, end: 20161125

REACTIONS (3)
  - Seizure [Recovered/Resolved]
  - Hand fracture [Unknown]
  - Wrist fracture [Unknown]

NARRATIVE: CASE EVENT DATE: 20161127
